FAERS Safety Report 15169741 (Version 3)
Quarter: 2018Q4

REPORT INFORMATION
  Report Type: Report from Study
  Country: None (occurrence: US)
  Receive Date: 20180720
  Receipt Date: 20181015
  Transmission Date: 20190204
  Serious: Yes (Hospitalization, Other)
  Sender: FDA-Public Use
  Company Number: US-ABBVIE-18K-163-2421920-00

PATIENT
  Age: 62 Year
  Sex: Male
  Weight: 136.2 kg

DRUGS (4)
  1. METHOTREXATE. [Suspect]
     Active Substance: METHOTREXATE
     Indication: PRODUCT USED FOR UNKNOWN INDICATION
     Route: 048
     Dates: start: 2014, end: 201707
  2. HUMIRA [Suspect]
     Active Substance: ADALIMUMAB
     Indication: PSORIASIS
     Route: 058
     Dates: start: 2014, end: 20180814
  3. HUMIRA [Suspect]
     Active Substance: ADALIMUMAB
     Route: 058
  4. NEURONTIN [Concomitant]
     Active Substance: GABAPENTIN
     Indication: BACK PAIN

REACTIONS (10)
  - Detoxification [Unknown]
  - Pneumonia [Recovered/Resolved]
  - Blood count abnormal [Unknown]
  - Diabetes mellitus [Recovering/Resolving]
  - Pain [Unknown]
  - Fall [Recovered/Resolved]
  - Sleep apnoea syndrome [Unknown]
  - Hepatic enzyme increased [Recovered/Resolved]
  - Anaemia [Not Recovered/Not Resolved]
  - Sepsis [Recovered/Resolved]

NARRATIVE: CASE EVENT DATE: 2014
